FAERS Safety Report 4741872-0 (Version None)
Quarter: 2005Q3

REPORT INFORMATION
  Report Type: 
  Country: None (occurrence: None)
  Receive Date: 20050803
  Receipt Date: 20041026
  Transmission Date: 20060218
  Serious: Yes (Hospitalization)
  Sender: FDA-Public Use
  Company Number: 2004093973

PATIENT
  Sex: 0

DRUGS (2)
  1. CAMPTOSAR [Suspect]
     Indication: ILL-DEFINED DISORDER
  2. CISPLATIN [Suspect]
     Indication: ILL-DEFINED DISORDER

REACTIONS (2)
  - DEHYDRATION [None]
  - DIARRHOEA [None]
